FAERS Safety Report 6619690 (Version 2)
Quarter: 2013Q3

REPORT INFORMATION
  Report Type: Report from Study
  Country: DE (occurrence: DE)
  Receive Date: 20080421
  Receipt Date: 20130814
  Transmission Date: 20140515
  Serious: Yes (Other)
  Sender: FDA-Public Use
  Company Number: PHHO2008DE04272

PATIENT
  Age: 42 Year
  Sex: Male
  Weight: 102 kg

DRUGS (3)
  1. NO TREATMENT RECEIVED [Suspect]
     Indication: ESSENTIAL HYPERTENSION
     Dates: start: 20080208
  2. ALISKIREN [Suspect]
     Indication: ESSENTIAL HYPERTENSION
     Dosage: 300 MG, QD
     Route: 048
     Dates: start: 20080222, end: 20080320
  3. COMPARATOR AMLODIPINE [Suspect]
     Indication: ESSENTIAL HYPERTENSION
     Dates: start: 20080323

REACTIONS (4)
  - Post procedural haemorrhage [Recovering/Resolving]
  - Post procedural swelling [Recovering/Resolving]
  - Procedural pain [Recovering/Resolving]
  - Procedural complication [Recovering/Resolving]
